FAERS Safety Report 23957568 (Version 4)
Quarter: 2024Q3

REPORT INFORMATION
  Report Type: Spontaneous
  Country: US (occurrence: US)
  Receive Date: 20240610
  Receipt Date: 20240918
  Transmission Date: 20241016
  Serious: No
  Sender: SANOFI AVENTIS
  Company Number: US-SA-SAC20240604000562

PATIENT
  Age: 70 Year
  Sex: Male

DRUGS (1)
  1. DUPIXENT [Suspect]
     Active Substance: DUPILUMAB
     Indication: Asthma
     Dosage: 300 MG, QOW
     Route: 058
     Dates: start: 20231031

REACTIONS (8)
  - Hiatus hernia [Unknown]
  - Stomatitis [Unknown]
  - Fungal skin infection [Unknown]
  - Faecal volume increased [Unknown]
  - Acne [Unknown]
  - Diarrhoea [Unknown]
  - Arthralgia [Unknown]
  - Dry eye [Unknown]

NARRATIVE: CASE EVENT DATE: 20240701
